FAERS Safety Report 5978973-5 (Version None)
Quarter: 2008Q4

REPORT INFORMATION
  Report Type: 
  Country: None (occurrence: None)
  Receive Date: 20081204
  Receipt Date: 20080212
  Transmission Date: 20090506
  Serious: No
  Sender: FDA-Public Use
  Company Number: US-ABBOTT-08P-163-0438042-00

PATIENT
  Age: 52 Year
  Sex: Male
  Weight: 86.26 kg

DRUGS (6)
  1. TRICOR [Suspect]
     Indication: BLOOD CHOLESTEROL INCREASED
     Route: 048
     Dates: start: 20071201
  2. TRICOR [Suspect]
     Indication: BLOOD TRIGLYCERIDES INCREASED
  3. ATORVASTATIN CALCIUM [Concomitant]
     Indication: BLOOD CHOLESTEROL INCREASED
     Route: 048
  4. ATORVASTATIN CALCIUM [Concomitant]
     Route: 048
  5. METAMUCIL [Concomitant]
     Indication: CONSTIPATION
     Route: 048
  6. METHYLCELLULOSE [Concomitant]
     Indication: CONSTIPATION
     Route: 048

REACTIONS (1)
  - CONSTIPATION [None]
